FAERS Safety Report 22074700 (Version 1)
Quarter: 2023Q1

REPORT INFORMATION
  Report Type: Spontaneous
  Country: US (occurrence: None)
  Receive Date: 20230308
  Receipt Date: 20230308
  Transmission Date: 20230418
  Serious: Yes (Death)
  Sender: FDA-Public Use
  Company Number: None

PATIENT
  Age: 75 Year
  Sex: Female
  Weight: 45.18 kg

DRUGS (8)
  1. REVLIMID [Suspect]
     Active Substance: LENALIDOMIDE
     Indication: Plasma cell myeloma
     Dosage: FREQUENCY : DAILY;?
     Route: 048
     Dates: start: 20160118, end: 20230302
  2. ASPIRIN [Concomitant]
     Active Substance: ASPIRIN
  3. K-Tab 20 mEq tablet,extended release [Concomitant]
  4. metoprolol succinate ER 25 mg tablet,extended release 24 hr [Concomitant]
  5. omeprazole 40 mg capsule,delayed release [Concomitant]
  6. ondansetron HCl 4 mg tablet [Concomitant]
  7. SERTRALINE HYDROCHLORIDE [Concomitant]
     Active Substance: SERTRALINE HYDROCHLORIDE
  8. VENTOLIN HFA [Concomitant]
     Active Substance: ALBUTEROL SULFATE

REACTIONS (1)
  - Death [None]

NARRATIVE: CASE EVENT DATE: 20230302
